FAERS Safety Report 4279470-8 (Version None)
Quarter: 2004Q1

REPORT INFORMATION
  Report Type: 
  Country: None (occurrence: None)
  Receive Date: 20040127
  Receipt Date: 20030908
  Transmission Date: 20041129
  Serious: Yes (Other)
  Sender: FDA-Public Use
  Company Number: FR-GLAXOSMITHKLINE-B0309083A

PATIENT
  Age: 74 Year
  Sex: Female
  Weight: 60 kg

DRUGS (5)
  1. LAMICTAL [Suspect]
     Indication: EPILEPSY
     Dosage: 300MG PER DAY
     Route: 048
     Dates: start: 20021201, end: 20030801
  2. VALPROATE SODIUM [Concomitant]
     Indication: EPILEPSY
     Route: 065
     Dates: end: 20030101
  3. SIMVASTATIN [Concomitant]
  4. OROCAL [Concomitant]
  5. ISOBAR [Concomitant]

REACTIONS (5)
  - ANTINUCLEAR ANTIBODY POSITIVE [None]
  - DERMATITIS BULLOUS [None]
  - RASH [None]
  - SKIN LESION [None]
  - SYSTEMIC LUPUS ERYTHEMATOSUS [None]
